FAERS Safety Report 19200216 (Version 1)
Quarter: 2021Q2

REPORT INFORMATION
  Report Type: Spontaneous
  Country: US (occurrence: US)
  Receive Date: 20210430
  Receipt Date: 20210430
  Transmission Date: 20210717
  Serious: Yes (Other)
  Sender: FDA-Public Use
  Company Number: None

PATIENT
  Age: 78 Year
  Sex: Female
  Weight: 63 kg

DRUGS (2)
  1. PRIVIGEN [Suspect]
     Active Substance: HUMAN IMMUNOGLOBULIN G
     Indication: POLYNEUROPATHY
     Dosage: ?          OTHER FREQUENCY:Q3WKS;?
     Route: 042
     Dates: start: 20190121, end: 20210218
  2. PRIVIGEN [Suspect]
     Active Substance: HUMAN IMMUNOGLOBULIN G
     Indication: POLYNEUROPATHY
     Dosage: ?          OTHER FREQUENCY:Q3WKS;?
     Route: 042
     Dates: start: 20190120, end: 20210218

REACTIONS (6)
  - Erythema [None]
  - Infusion related reaction [None]
  - Pharyngeal swelling [None]
  - Swelling face [None]
  - Speech disorder [None]
  - Swelling [None]

NARRATIVE: CASE EVENT DATE: 20210121
